FAERS Safety Report 9012715 (Version 1)
Quarter: 2013Q1

REPORT INFORMATION
  Report Type: Report from Study
  Country: GB (occurrence: GB)
  Receive Date: 20130114
  Receipt Date: 20130114
  Transmission Date: 20140127
  Serious: Yes (Death)
  Sender: FDA-Public Use
  Company Number: GB-ROCHE-1178429

PATIENT
  Sex: Female

DRUGS (3)
  1. RITUXIMAB [Suspect]
     Indication: RHEUMATOID ARTHRITIS
     Route: 065
     Dates: start: 20091115
  2. METHOTREXATE [Concomitant]
  3. AZULFIDINE [Concomitant]

REACTIONS (2)
  - Renal failure [Fatal]
  - Renal failure chronic [Fatal]
